FAERS Safety Report 23642137 (Version 1)
Quarter: 2024Q1

REPORT INFORMATION
  Report Type: Spontaneous
  Country: CA (occurrence: CA)
  Receive Date: 20240318
  Receipt Date: 20240318
  Transmission Date: 20240410
  Serious: Yes (Death, Hospitalization)
  Sender: FDA-Public Use
  Company Number: None

PATIENT
  Age: 61 Year
  Sex: Female
  Weight: 51 kg

DRUGS (11)
  1. FLUOROURACIL [Suspect]
     Active Substance: FLUOROURACIL
     Indication: Oesophageal squamous cell carcinoma metastatic
     Dosage: 1 EVERY 2 WEEKS
     Route: 042
  2. OXALIPLATIN [Suspect]
     Active Substance: OXALIPLATIN
     Indication: Oesophageal squamous cell carcinoma metastatic
     Dosage: 1 EVERY 2 WEEKS
     Route: 042
  3. PEMBROLIZUMAB [Suspect]
     Active Substance: PEMBROLIZUMAB
     Indication: Oesophageal squamous cell carcinoma metastatic
     Dosage: 1 EVERY 42 DAYS
     Route: 042
  4. DIMENHYDRINATE [Concomitant]
     Active Substance: DIMENHYDRINATE
  5. DEXAMETHASONE [Concomitant]
     Active Substance: DEXAMETHASONE
  6. LEUCOVORIN [Concomitant]
     Active Substance: LEUCOVORIN\LEUCOVORIN CALCIUM
  7. ONDANSETRON [Concomitant]
     Active Substance: ONDANSETRON
  8. PREVACID [Concomitant]
     Active Substance: LANSOPRAZOLE
     Dosage: TABLET (DELAYED RELEASE)
  9. PROCHLORPERAZINE [Concomitant]
     Active Substance: PROCHLORPERAZINE
  10. SUCRALFATE [Concomitant]
     Active Substance: SUCRALFATE
  11. FLUOROURACIL [Suspect]
     Active Substance: FLUOROURACIL
     Indication: Oesophageal squamous cell carcinoma metastatic
     Dosage: 1 EVERY 2 WEEKS
     Route: 042

REACTIONS (6)
  - Blister [Fatal]
  - Pain [Fatal]
  - Rash morbilliform [Fatal]
  - Skin injury [Fatal]
  - Stevens-Johnson syndrome [Fatal]
  - Toxic epidermal necrolysis [Fatal]
